FAERS Safety Report 17381389 (Version 4)
Quarter: 2021Q4

REPORT INFORMATION
  Report Type: Spontaneous
  Country: US (occurrence: None)
  Receive Date: 20200206
  Receipt Date: 20211130
  Transmission Date: 20220303
  Serious: Yes (Hospitalization, Other)
  Sender: FDA-Public Use
  Company Number: 2020SE15695

PATIENT
  Age: 49 Year
  Sex: Female
  Weight: 235.9 kg

DRUGS (52)
  1. NEXIUM [Suspect]
     Active Substance: ESOMEPRAZOLE MAGNESIUM
     Indication: Gastrooesophageal reflux disease
     Route: 048
     Dates: start: 200001, end: 200312
  2. NEXIUM [Suspect]
     Active Substance: ESOMEPRAZOLE MAGNESIUM
     Indication: Gastrooesophageal reflux disease
     Route: 048
     Dates: start: 2001
  3. PRILOSEC [Suspect]
     Active Substance: OMEPRAZOLE MAGNESIUM
     Indication: Gastrooesophageal reflux disease
     Route: 048
     Dates: start: 200001, end: 200312
  4. PRILOSEC [Suspect]
     Active Substance: OMEPRAZOLE MAGNESIUM
     Indication: Gastrooesophageal reflux disease
     Route: 048
     Dates: start: 2000
  5. PREVACID [Suspect]
     Active Substance: LANSOPRAZOLE
     Indication: Gastrooesophageal reflux disease
     Route: 065
     Dates: start: 200001, end: 200312
  6. PREVACID [Suspect]
     Active Substance: LANSOPRAZOLE
     Indication: Gastrooesophageal reflux disease
     Dosage: PLACE 1 TABLET ON TONGUE AND LET DISSOLVE
     Route: 048
     Dates: start: 20130901
  7. PREVACID [Suspect]
     Active Substance: LANSOPRAZOLE
     Indication: Gastrooesophageal reflux disease
     Dosage: GENERIC
     Route: 065
     Dates: start: 2007
  8. PREVACID [Suspect]
     Active Substance: LANSOPRAZOLE
     Indication: Gastrooesophageal reflux disease
     Route: 065
     Dates: start: 2000, end: 2013
  9. PREVACID [Suspect]
     Active Substance: LANSOPRAZOLE
     Indication: Gastrooesophageal reflux disease
     Route: 048
     Dates: start: 20070514
  10. PROTONIX [Suspect]
     Active Substance: PANTOPRAZOLE SODIUM
     Indication: Gastrooesophageal reflux disease
     Route: 065
     Dates: start: 2000, end: 2019
  11. PROTONIX [Suspect]
     Active Substance: PANTOPRAZOLE SODIUM
     Indication: Gastrooesophageal reflux disease
     Dosage: GENERIC
     Route: 065
     Dates: start: 201903
  12. PROTONIX [Suspect]
     Active Substance: PANTOPRAZOLE SODIUM
     Indication: Gastrooesophageal reflux disease
     Dosage: GENERIC40.0MG UNKNOWN
     Route: 048
     Dates: start: 20140110
  13. PROTONIX [Suspect]
     Active Substance: PANTOPRAZOLE SODIUM
     Indication: Gastrooesophageal reflux disease
     Dosage: 40.0MG UNKNOWN
     Route: 048
  14. LASIX [Concomitant]
     Active Substance: FUROSEMIDE
     Route: 048
     Dates: start: 20140406
  15. HYDROXYZINE [Concomitant]
     Active Substance: HYDROXYZINE HYDROCHLORIDE
     Route: 048
     Dates: start: 20140406
  16. NIFEDIPINE [Concomitant]
     Active Substance: NIFEDIPINE
     Route: 048
     Dates: start: 20140406
  17. LISINOPRIL [Concomitant]
     Active Substance: LISINOPRIL
     Route: 048
     Dates: start: 20130901
  18. ESCIN/LEVOTHYROXINE [Concomitant]
     Indication: Thyroid disorder
     Route: 048
     Dates: start: 20130901
  19. NOVOLOG [Concomitant]
     Active Substance: INSULIN ASPART
     Indication: Blood insulin
     Dosage: 100 U/ML DAILY WITH BREAKFAST AND WITH SUPPER
     Route: 058
     Dates: start: 20140406
  20. MIRTAZAPINE [Concomitant]
     Active Substance: MIRTAZAPINE
     Route: 048
     Dates: start: 20130901
  21. MEVACOR [Concomitant]
     Active Substance: LOVASTATIN
     Indication: Blood cholesterol
     Route: 048
     Dates: start: 20140406
  22. PROMETHAZINE [Concomitant]
     Active Substance: PROMETHAZINE HYDROCHLORIDE
     Dosage: PRN
     Route: 048
     Dates: start: 20140406
  23. METOLAZONE [Concomitant]
     Active Substance: METOLAZONE
     Route: 048
     Dates: start: 20130901
  24. ALLOPURINOL [Concomitant]
     Active Substance: ALLOPURINOL
     Indication: Nephrolithiasis
  25. INSULIN NOS [Concomitant]
     Active Substance: INSULIN NOS
     Indication: Diabetes mellitus
  26. AMLODIPINE BESILATE/BENAZEPRIL [Concomitant]
     Indication: Blood pressure abnormal
  27. CARVEDILOL [Concomitant]
     Active Substance: CARVEDILOL
     Indication: Cardiac failure
  28. CILOSTAZOL [Concomitant]
     Active Substance: CILOSTAZOL
     Indication: Anticoagulant therapy
  29. CYCLOBENZAPRINE [Concomitant]
     Active Substance: CYCLOBENZAPRINE
     Indication: Muscle spasms
  30. GABAPENTIN [Concomitant]
     Active Substance: GABAPENTIN
     Indication: Pain
  31. LEVEMIR [Concomitant]
     Active Substance: INSULIN DETEMIR
     Indication: Blood insulin
  32. MITIGARE [Concomitant]
     Active Substance: COLCHICINE
     Indication: Gout
     Route: 048
     Dates: start: 20140406
  33. TORSEMIDE [Concomitant]
     Active Substance: TORSEMIDE
     Indication: Diuretic therapy
     Route: 048
     Dates: start: 20140406
  34. TRAZODONE [Concomitant]
     Active Substance: TRAZODONE HYDROCHLORIDE
     Indication: Depression
     Route: 048
     Dates: start: 20140406
  35. TRAMADOL [Concomitant]
     Active Substance: TRAMADOL
     Dates: start: 20140110
  36. HYDROCODONE [Concomitant]
     Active Substance: HYDROCODONE
     Dosage: PRN
     Route: 048
     Dates: start: 20140406
  37. DIOVAN [Concomitant]
     Active Substance: VALSARTAN
     Dosage: PRN
     Route: 048
     Dates: start: 20140406
  38. ENOXAPARIN [Concomitant]
     Active Substance: ENOXAPARIN
     Dosage: PRN
     Route: 048
     Dates: start: 20140406
  39. SPIRONOLACTONE [Concomitant]
     Active Substance: SPIRONOLACTONE
  40. OXYCODONE [Concomitant]
     Active Substance: OXYCODONE
  41. TIMOLOL [Concomitant]
     Active Substance: TIMOLOL
  42. MELOXICAM [Concomitant]
     Active Substance: MELOXICAM
  43. NOVOLIN NOS [Concomitant]
     Active Substance: INSULIN HUMAN
  44. SYMLIN [Concomitant]
     Active Substance: PRAMLINTIDE ACETATE
  45. CEPHALEXIN [Concomitant]
     Active Substance: CEPHALEXIN
  46. AMITRIPTYLINE [Concomitant]
     Active Substance: AMITRIPTYLINE
     Dosage: PRN
     Route: 048
     Dates: start: 20140406
  47. INDOMETHACIN [Concomitant]
     Active Substance: INDOMETHACIN
     Dosage: PRN
     Route: 048
     Dates: start: 20140406
  48. BENAZEPRIL [Concomitant]
     Active Substance: BENAZEPRIL HYDROCHLORIDE
     Dosage: PRN
     Route: 048
     Dates: start: 20140406
  49. BENAZEPRIL HYDROCHLORIDE [Concomitant]
     Active Substance: BENAZEPRIL HYDROCHLORIDE
     Dosage: PRN
     Route: 048
     Dates: start: 20140406
  50. BARCTRIM [Concomitant]
     Dosage: PRN
     Route: 048
     Dates: start: 20140406
  51. MITAGARE [Concomitant]
     Dosage: PRN
     Route: 048
     Dates: start: 20140406
  52. AMBIEN [Concomitant]
     Active Substance: ZOLPIDEM TARTRATE
     Dosage: PRN
     Route: 048
     Dates: start: 20140406

REACTIONS (3)
  - Acute kidney injury [Not Recovered/Not Resolved]
  - Chronic kidney disease [Unknown]
  - End stage renal disease [Unknown]

NARRATIVE: CASE EVENT DATE: 20110101
